FAERS Safety Report 21851241 (Version 1)
Quarter: 2023Q1

REPORT INFORMATION
  Report Type: Spontaneous
  Country: SE (occurrence: SE)
  Receive Date: 20230112
  Receipt Date: 20230112
  Transmission Date: 20230418
  Serious: Yes (Hospitalization)
  Sender: FDA-Public Use
  Company Number: SE-SUN PHARMACEUTICAL INDUSTRIES LTD-2022RR-373008

PATIENT
  Age: 17 Year
  Sex: Female

DRUGS (4)
  1. SERTRALINE [Suspect]
     Active Substance: SERTRALINE HYDROCHLORIDE
     Indication: Product used for unknown indication
     Dosage: 200 MILLIGRAM, IN TOTAL
     Route: 048
     Dates: start: 20210107, end: 20210107
  2. LISDEXAMFETAMINE DIMESYLATE [Suspect]
     Active Substance: LISDEXAMFETAMINE DIMESYLATE
     Indication: Product used for unknown indication
     Dosage: 210 MILLIGRAM, IN TOTAL
     Route: 048
     Dates: start: 20210107, end: 20210107
  3. MELATONIN [Suspect]
     Active Substance: MELATONIN
     Indication: Product used for unknown indication
     Dosage: 36 MILLIGRAM, IN TOTAL
     Route: 048
     Dates: start: 20210107, end: 20210107
  4. IBUPROFEN [Suspect]
     Active Substance: IBUPROFEN
     Indication: Product used for unknown indication
     Dosage: 1600 MILLIGRAM, IN TOTAL
     Route: 048
     Dates: start: 20210107, end: 20210107

REACTIONS (2)
  - Intentional overdose [Unknown]
  - Intentional self-injury [Unknown]
